FAERS Safety Report 6725631-5 (Version None)
Quarter: 2010Q2

REPORT INFORMATION
  Report Type: 
  Country: None (occurrence: None)
  Receive Date: 20100514
  Receipt Date: 20100510
  Transmission Date: 20101027
  Serious: Yes (Death)
  Sender: FDA-Public Use
  Company Number: US-ROCHE-701496

PATIENT
  Sex: Male
  Weight: 51.3 kg

DRUGS (2)
  1. BEVACIZUMAB [Suspect]
     Indication: NON-SMALL CELL LUNG CANCER
     Dosage: DOSE, FORM AND FREQUENCY NOT PROVIDED.
     Route: 065
     Dates: end: 20090512
  2. ERLOTINIB HYDROCHLORIDE [Suspect]
     Indication: NON-SMALL CELL LUNG CANCER
     Dosage: DOSE, FORM AND FREQUENCY NOT REPORTED.
     Route: 065
     Dates: end: 20090629

REACTIONS (1)
  - LUNG CANCER METASTATIC [None]
